FAERS Safety Report 4728266-9 (Version None)
Quarter: 2005Q3

REPORT INFORMATION
  Report Type: 
  Country: None (occurrence: None)
  Receive Date: 20050727
  Receipt Date: 20050714
  Transmission Date: 20060218
  Serious: Yes (Other)
  Sender: FDA-Public Use
  Company Number: DE-2005-014515

PATIENT
  Age: 30 Year
  Sex: Female
  Weight: 65 kg

DRUGS (1)
  1. PETIBELLE 30 (21)(ETHINYLESTRADIOL), DROSPIRENONE) FILM TABLET [Suspect]
     Indication: ORAL CONTRACEPTION
     Dosage: 1 TAB(S), 21D/28D, ORAL
     Route: 048
     Dates: start: 20000120

REACTIONS (2)
  - ENDOMETRIOSIS [None]
  - VAGINAL DISORDER [None]
